FAERS Safety Report 8305411-X (Version None)
Quarter: 2012Q2

REPORT INFORMATION
  Report Type: 
  Country: None (occurrence: None)
  Receive Date: 20120423
  Receipt Date: 20120413
  Transmission Date: 20120825
  Serious: Yes (Hospitalization)
  Sender: FDA-Public Use
  Company Number: FR-BRISTOL-MYERS SQUIBB COMPANY-16528861

PATIENT
  Age: 38 Year
  Sex: Male

DRUGS (5)
  1. FUNGIZONE [Suspect]
     Indication: MENINGITIS CRYPTOCOCCAL
     Route: 042
     Dates: start: 20120301, end: 20120306
  2. AMOXICILLIN [Suspect]
     Route: 042
     Dates: start: 20120229, end: 20120305
  3. HYDROCORTISONE [Suspect]
     Indication: MENINGITIS CRYPTOCOCCAL
     Route: 042
     Dates: start: 20120301, end: 20120306
  4. ANCOTIL [Suspect]
     Indication: MENINGITIS CRYPTOCOCCAL
     Route: 042
     Dates: start: 20120301, end: 20120306
  5. LOVENOX [Concomitant]

REACTIONS (3)
  - THROMBOCYTOPENIA [None]
  - NEUTROPENIA [None]
  - LEUKOPENIA [None]
